FAERS Safety Report 23281327 (Version 3)
Quarter: 2024Q1

REPORT INFORMATION
  Report Type: Spontaneous
  Country: US (occurrence: US)
  Receive Date: 20231211
  Receipt Date: 20240306
  Transmission Date: 20240410
  Serious: Yes (Other)
  Sender: FDA-Public Use
  Company Number: US-BRISTOL-MYERS SQUIBB COMPANY-2023-175624

PATIENT
  Age: 73 Year
  Sex: Female
  Weight: 89.36 kg

DRUGS (2)
  1. REVLIMID [Suspect]
     Active Substance: LENALIDOMIDE
     Indication: Monoclonal gammopathy
     Dosage: 14D,21DCYCLE
     Route: 048
  2. REVLIMID [Suspect]
     Active Substance: LENALIDOMIDE
     Dosage: DAILY
     Route: 048

REACTIONS (9)
  - Rash [Recovering/Resolving]
  - Constipation [Recovering/Resolving]
  - Peripheral swelling [Recovering/Resolving]
  - Contusion [Recovering/Resolving]
  - Thrombosis [Recovering/Resolving]
  - Off label use [Unknown]
  - COVID-19 [Unknown]
  - Pain in extremity [Recovering/Resolving]
  - Decreased appetite [Recovering/Resolving]

NARRATIVE: CASE EVENT DATE: 20231201
